FAERS Safety Report 16838727 (Version 1)
Quarter: 2019Q3

REPORT INFORMATION
  Report Type: Spontaneous
  Country: BR (occurrence: BR)
  Receive Date: 20190923
  Receipt Date: 20190923
  Transmission Date: 20191005
  Serious: Yes (Other)
  Sender: FDA-Public Use
  Company Number: PHHY2019BR219196

PATIENT
  Sex: Male

DRUGS (2)
  1. TASIGNA [Suspect]
     Active Substance: NILOTINIB
     Indication: CHRONIC MYELOID LEUKAEMIA
     Dosage: 400 MG, BID
     Route: 065
     Dates: end: 200804
  2. TASIGNA [Suspect]
     Active Substance: NILOTINIB
     Dosage: 400 MG, QD
     Route: 065
     Dates: start: 200805

REACTIONS (9)
  - Drug ineffective [Unknown]
  - Chromosomal deletion [Unknown]
  - Cytogenetic analysis abnormal [Not Recovered/Not Resolved]
  - Leukopenia [Unknown]
  - Thrombocytopenia [Unknown]
  - Erythroblast count decreased [Unknown]
  - Haematotoxicity [Unknown]
  - Megakaryocytes decreased [Unknown]
  - Marrow hyperplasia [Unknown]

NARRATIVE: CASE EVENT DATE: 20090219
